FAERS Safety Report 22258885 (Version 5)
Quarter: 2024Q2

REPORT INFORMATION
  Report Type: Report from Study
  Country: JP (occurrence: JP)
  Receive Date: 20230427
  Receipt Date: 20240523
  Transmission Date: 20240716
  Serious: Yes (Death, Other)
  Sender: FDA-Public Use
  Company Number: JP-TAKEDA-2023TJP005070

PATIENT
  Age: 70 Year
  Sex: Male
  Weight: 57 kg

DRUGS (1)
  1. LEUPROLIDE ACETATE [Suspect]
     Active Substance: ISOPROPYL ALCOHOL\LEUPROLIDE ACETATE
     Indication: Bulbospinal muscular atrophy congenital
     Dosage: 11.25 MILLIGRAM, Q3MONTHS
     Route: 058
     Dates: start: 20170904, end: 20221222

REACTIONS (2)
  - Acute respiratory failure [Fatal]
  - Spinal compression fracture [Fatal]

NARRATIVE: CASE EVENT DATE: 20200124
